FAERS Safety Report 6241766-8 (Version None)
Quarter: 2009Q2

REPORT INFORMATION
  Report Type: 
  Country: None (occurrence: None)
  Receive Date: 20090617
  Receipt Date: 20071001
  Transmission Date: 20091009
  Serious: No
  Sender: FDA-Public Use
  Company Number: 268071

PATIENT
  Sex: Female

DRUGS (1)
  1. LEVEMIR [Suspect]
     Indication: INSULIN-REQUIRING TYPE 2 DIABETES MELLITUS
     Dosage: 90 IU, QD, SUBCUTANEOUS
     Route: 058
     Dates: end: 20071001

REACTIONS (4)
  - INJECTION SITE ERYTHEMA [None]
  - INJECTION SITE PRURITUS [None]
  - INJECTION SITE SWELLING [None]
  - INJECTION SITE URTICARIA [None]
